FAERS Safety Report 9158842 (Version 2)
Quarter: 2013Q2

REPORT INFORMATION
  Report Type: Spontaneous
  Country: AU (occurrence: AU)
  Receive Date: 20130313
  Receipt Date: 20130408
  Transmission Date: 20140414
  Serious: Yes (Hospitalization)
  Sender: FDA-Public Use
  Company Number: AU-AMGEN-AUSSP2013016104

PATIENT
  Age: 36 Year
  Sex: Male

DRUGS (4)
  1. NEULASTA [Suspect]
     Indication: PRODUCT USED FOR UNKNOWN INDICATION
     Dosage: UNK
     Dates: start: 20130302
  2. BLEOMYCIN [Concomitant]
     Indication: TESTIS CANCER
     Dosage: UNK
     Dates: start: 20130225
  3. ETOPOSIDE [Concomitant]
     Indication: TESTIS CANCER
     Dosage: UNK
     Dates: start: 20130225
  4. CISPLATIN [Concomitant]
     Indication: TESTIS CANCER
     Dosage: UNK
     Dates: start: 20130225

REACTIONS (4)
  - Pancytopenia [Recovered/Resolved]
  - Febrile neutropenia [Recovered/Resolved]
  - Thrombocytopenia [Recovered/Resolved]
  - Drug ineffective [Unknown]
